FAERS Safety Report 7338544-5 (Version None)
Quarter: 2011Q1

REPORT INFORMATION
  Report Type: 
  Country: None (occurrence: None)
  Receive Date: 20110308
  Receipt Date: 20110303
  Transmission Date: 20110831
  Serious: Yes (Death)
  Sender: FDA-Public Use
  Company Number: US-PFIZER INC-2011047656

PATIENT
  Sex: Male

DRUGS (1)
  1. VFEND [Suspect]
     Indication: PYREXIA
     Dosage: 200 MG, 2X/DAY

REACTIONS (1)
  - DEATH [None]
